FAERS Safety Report 5802753-4 (Version None)
Quarter: 2008Q3

REPORT INFORMATION
  Report Type: 
  Country: None (occurrence: None)
  Receive Date: 20080708
  Receipt Date: 20080624
  Transmission Date: 20090109
  Serious: Yes (Hospitalization, Other)
  Sender: FDA-Public Use
  Company Number: US-NOVOPROD-274015

PATIENT
  Age: 56 Year
  Sex: Male
  Weight: 63.6 kg

DRUGS (2)
  1. NOVOSEVEN [Suspect]
     Indication: HAEMORRHAGE
     Dosage: 90 UG/KG, SINGLE
     Route: 042
     Dates: start: 20080218, end: 20080218
  2. NOVOSEVEN [Suspect]
     Indication: INJURY

REACTIONS (5)
  - ABDOMINAL SEPSIS [None]
  - PANCREATITIS [None]
  - RENAL FAILURE ACUTE [None]
  - VENOUS THROMBOSIS LIMB [None]
  - WOUND INFECTION [None]
